FAERS Safety Report 9169642 (Version 1)
Quarter: 2013Q1

REPORT INFORMATION
  Report Type: Spontaneous
  Country: US (occurrence: US)
  Receive Date: 20130318
  Receipt Date: 20130318
  Transmission Date: 20140127
  Serious: Yes (Hospitalization)
  Sender: FDA-Public Use
  Company Number: US-GILEAD-2013-0067260

PATIENT
  Sex: Female

DRUGS (6)
  1. LETAIRIS [Suspect]
     Indication: PULMONARY ARTERIAL HYPERTENSION
     Dosage: 10 MG, QD
     Route: 048
     Dates: start: 20110225
  2. ISOSORBIDE [Concomitant]
  3. HYDRALAZINE [Concomitant]
  4. PAROXETINE [Concomitant]
  5. AMITRIPTYLINE [Concomitant]
  6. LIPITOR [Concomitant]
     Indication: PULMONARY HYPERTENSION

REACTIONS (1)
  - Pulmonary embolism [Unknown]
